FAERS Safety Report 5452677-X (Version None)
Quarter: 2007Q3

REPORT INFORMATION
  Report Type: 
  Country: None (occurrence: None)
  Receive Date: 20070914
  Receipt Date: 20070904
  Transmission Date: 20080115
  Serious: Yes (Death)
  Sender: FDA-Public Use
  Company Number: US-JNJFOC-20070901046

PATIENT
  Sex: Male
  Weight: 97.98 kg

DRUGS (8)
  1. TYLENOL W/ CODEINE NO. 3 [Suspect]
     Indication: OTITIS MEDIA
     Dosage: AS NEEDED
     Route: 048
  2. AUGMENTIN '125' [Suspect]
     Indication: PHARYNGOLARYNGEAL PAIN
     Route: 048
  3. BENZOTROPINE MESYLATE [Concomitant]
     Route: 065
  4. DOCUSATE SODIUM [Concomitant]
     Route: 065
  5. DIPHENHYDRAMINE HCL [Concomitant]
     Route: 065
  6. RISPERIDONE [Concomitant]
     Route: 065
  7. QUETIAPINE FUMARATE [Concomitant]
     Route: 065
  8. SEMISODIUM VALPROATE [Concomitant]
     Route: 065

REACTIONS (12)
  - ACIDOSIS [None]
  - BELLIGERENCE [None]
  - BLOOD GLUCOSE DECREASED [None]
  - CAROTID ARTERY STENOSIS [None]
  - CONFUSIONAL STATE [None]
  - CORONARY ARTERY DISEASE [None]
  - HEPATOSPLENOMEGALY [None]
  - PHARYNGITIS [None]
  - PULMONARY OEDEMA [None]
  - SPLENIC INFARCTION [None]
  - SUDDEN DEATH [None]
  - SUICIDE ATTEMPT [None]
